FAERS Safety Report 6711161-3 (Version None)
Quarter: 2010Q2

REPORT INFORMATION
  Report Type: 
  Country: None (occurrence: None)
  Receive Date: 20100504
  Receipt Date: 20100504
  Transmission Date: 20101027
  Serious: Yes (Hospitalization)
  Sender: FDA-Public Use
  Company Number: None

PATIENT
  Age: 2 Year
  Sex: Female
  Weight: 10.4327 kg

DRUGS (1)
  1. CHILDREN'S MOTRIN [Suspect]
     Indication: PYREXIA
     Dosage: 5ML 2 TIMES 6 HOURS BT PO
     Route: 048
     Dates: start: 20100418, end: 20100418

REACTIONS (3)
  - DRUG INEFFECTIVE [None]
  - ECONOMIC PROBLEM [None]
  - FEBRILE CONVULSION [None]
